FAERS Safety Report 4420152-7 (Version None)
Quarter: 2004Q3

REPORT INFORMATION
  Report Type: 
  Country: None (occurrence: None)
  Receive Date: 20040804
  Receipt Date: 20040727
  Transmission Date: 20050211
  Serious: Yes (Hospitalization)
  Sender: FDA-Public Use
  Company Number: US-SHR-04-024896

PATIENT
  Age: 72 Year
  Sex: Male
  Weight: 74.8 kg

DRUGS (14)
  1. BETASERON [Suspect]
     Indication: MULTIPLE SCLEROSIS
     Dosage: 8 MIU, EVERY 2D, SUBCUTANEOUS
     Route: 058
     Dates: start: 19940622, end: 20040430
  2. BETASERON [Suspect]
     Indication: MULTIPLE SCLEROSIS
     Dosage: 8 MIU, EVERY 2D, SUBCUTANEOUS
     Route: 058
     Dates: start: 20040502
  3. ZOCOR [Concomitant]
  4. GEMFIBROZIL [Concomitant]
  5. BACLOFEN [Concomitant]
  6. METOPROLOL [Concomitant]
  7. ASPIRIN [Concomitant]
  8. MULTIVITAMINS (PANTHENOL, RETINOL) [Concomitant]
  9. VITAMIN E [Concomitant]
  10. DITROPAN /SCH/ (OXYBUTYNIN HYDROCHLORIDE) [Concomitant]
  11. AMANTADINE HCL [Concomitant]
  12. HYDROCHLOROTHIAZIDE [Concomitant]
  13. TYLENOL [Concomitant]
  14. LOPID [Concomitant]

REACTIONS (13)
  - ABDOMINAL DISCOMFORT [None]
  - ATRIOVENTRICULAR BLOCK FIRST DEGREE [None]
  - BILE DUCT STONE [None]
  - BILIARY DILATATION [None]
  - BLOOD AMYLASE INCREASED [None]
  - BLOOD BILIRUBIN INCREASED [None]
  - CHOLELITHIASIS [None]
  - LIPASE INCREASED [None]
  - LIVER FUNCTION TEST ABNORMAL [None]
  - PAIN [None]
  - PANCREATITIS [None]
  - PANCREATOLITHIASIS [None]
  - PLATELET COUNT DECREASED [None]
